FAERS Safety Report 5507265-3 (Version None)
Quarter: 2007Q4

REPORT INFORMATION
  Report Type: 
  Country: None (occurrence: None)
  Receive Date: 20071106
  Receipt Date: 20071029
  Transmission Date: 20080405
  Serious: Yes (Hospitalization)
  Sender: FDA-Public Use
  Company Number: PHBS2007DK18205

PATIENT
  Sex: Male

DRUGS (2)
  1. DIOVAN [Suspect]
     Dosage: 80 MG, UNK
  2. NORVASC [Suspect]
     Dosage: 5 MG, UNK

REACTIONS (2)
  - ANGINA PECTORIS [None]
  - PAIN [None]
